FAERS Safety Report 5249973-8 (Version None)
Quarter: 2007Q1

REPORT INFORMATION
  Report Type: 
  Country: None (occurrence: None)
  Receive Date: 20070228
  Receipt Date: 20060420
  Transmission Date: 20070707
  Serious: Yes (Other)
  Sender: FDA-Public Use
  Company Number: US-GLAXOSMITHKLINE-A0589075A

PATIENT
  Age: 21 Year
  Sex: Female
  Weight: 57.7 kg

DRUGS (4)
  1. LAMICTAL [Suspect]
     Indication: BIPOLAR DISORDER
     Dosage: 25MG PER DAY
     Route: 048
     Dates: start: 20060104, end: 20060107
  2. LITHIUM CARBONATE [Concomitant]
     Indication: BIPOLAR DISORDER
     Dosage: 600MG PER DAY
     Route: 048
     Dates: start: 20060102
  3. LEVOXYL [Concomitant]
  4. PAXIL [Concomitant]

REACTIONS (3)
  - RASH GENERALISED [None]
  - RASH PRURITIC [None]
  - STEVENS-JOHNSON SYNDROME [None]
